FAERS Safety Report 18203756 (Version 1)
Quarter: 2020Q3

REPORT INFORMATION
  Report Type: Spontaneous
  Country: FR (occurrence: FR)
  Receive Date: 20200827
  Receipt Date: 20200827
  Transmission Date: 20201103
  Serious: Yes (Other)
  Sender: FDA-Public Use
  Company Number: FR-MYLANLABS-2020M1073300

PATIENT
  Age: 66 Year
  Sex: Male
  Weight: 82.4 kg

DRUGS (16)
  1. DULCOLAX (BISACODYL) [Suspect]
     Active Substance: BISACODYL
     Indication: CONSTIPATION
     Dosage: 2 DOSAGE FORM, QD
     Route: 048
     Dates: start: 20200613
  2. PREVNAR 13 [Suspect]
     Active Substance: PNEUMOCOCCAL 13-VALENT CONJUGATE VACCINE
     Indication: IMMUNISATION
     Dosage: 1 DOSAGE FORM, TOTAL
     Route: 030
     Dates: start: 20200609, end: 20200609
  3. ZAMUDOL LP 100 MG, G?LULE ? LIB?RATION PROLONG?E [Suspect]
     Active Substance: TRAMADOL HYDROCHLORIDE
     Indication: PAIN
     Dosage: 100 MILLIGRAM, QD
     Route: 048
     Dates: start: 20200530, end: 20200615
  4. CORTANCYL [Suspect]
     Active Substance: PREDNISONE
     Indication: PROPHYLAXIS
     Dosage: 60MG ? 20MG
     Route: 048
     Dates: start: 20200610, end: 20200613
  5. LOVENOX [Suspect]
     Active Substance: ENOXAPARIN SODIUM
     Indication: PAIN
     Dosage: 4000 INTERNATIONAL UNIT, QD
     Route: 058
     Dates: start: 20200530, end: 20200619
  6. NEBIVOLOL. [Concomitant]
     Active Substance: NEBIVOLOL
     Dosage: UNK
  7. OXYCODONE MYLAN LP 20 MG, COMPRIM? PELLICUL? ? LIB?RATION PROLONG?E [Suspect]
     Active Substance: OXYCODONE
     Indication: PAIN
     Dosage: 40 MILLIGRAM, QD
     Route: 048
     Dates: start: 20200615, end: 20200620
  8. MICROLAX                           /01109601/ [Concomitant]
     Dosage: UNK
  9. CARBOPLATINE [Suspect]
     Active Substance: CARBOPLATIN
     Indication: MESOTHELIOMA
     Dosage: 660 MILLIGRAM, TOTAL
     Route: 041
     Dates: start: 20200610, end: 20200610
  10. ATORVASTATINE                      /01326101/ [Concomitant]
     Active Substance: ATORVASTATIN
     Dosage: UNK
  11. ACIDE FOLIQUE [Concomitant]
     Active Substance: FOLIC ACID
     Dosage: UNK
  12. ALIMTA [Suspect]
     Active Substance: PEMETREXED DISODIUM
     Indication: MESOTHELIOMA
     Dosage: 1000 MILLIGRAM, TOTAL
     Route: 041
     Dates: start: 20200610, end: 20200610
  13. EMEND [Suspect]
     Active Substance: APREPITANT
     Indication: PROPHYLAXIS
     Dosage: 125 MILLIGRAM, QD
     Route: 048
     Dates: start: 20200610, end: 20200612
  14. SPIRIVA [Concomitant]
     Active Substance: TIOTROPIUM BROMIDE MONOHYDRATE
     Dosage: UNK
  15. VERSATIS [Suspect]
     Active Substance: LIDOCAINE
     Indication: PAIN
     Dosage: 1DF 16H/24H
     Route: 003
     Dates: start: 20200615, end: 20200617
  16. ONBREZ BREEZHALER [Concomitant]
     Active Substance: INDACATEROL
     Dosage: UNK

REACTIONS (2)
  - Erythema [Not Recovered/Not Resolved]
  - Pruritus [Not Recovered/Not Resolved]

NARRATIVE: CASE EVENT DATE: 20200618
